FAERS Safety Report 12022700 (Version 1)
Quarter: 2016Q1

REPORT INFORMATION
  Report Type: Report from Study
  Country: US (occurrence: US)
  Receive Date: 20160206
  Receipt Date: 20160206
  Transmission Date: 20160526
  Serious: No
  Sender: FDA-Public Use
  Company Number: US-ABBVIE-15K-163-1473162-00

PATIENT
  Sex: Female

DRUGS (1)
  1. HUMIRA [Suspect]
     Active Substance: ADALIMUMAB
     Indication: CROHN^S DISEASE
     Route: 065
     Dates: start: 201504

REACTIONS (8)
  - Drug dose omission [Unknown]
  - Frequent bowel movements [Unknown]
  - Chills [Unknown]
  - Mucous stools [Unknown]
  - Pyrexia [Unknown]
  - Hyperhidrosis [Unknown]
  - Crohn^s disease [Unknown]
  - Abdominal pain [Unknown]

NARRATIVE: CASE EVENT DATE: 2015
